FAERS Safety Report 8833773 (Version 2)
Quarter: 2013Q1

REPORT INFORMATION
  Report Type: Spontaneous
  Country: US (occurrence: US)
  Receive Date: 20121010
  Receipt Date: 20130318
  Transmission Date: 20140127
  Serious: Yes (Other)
  Sender: FDA-Public Use
  Company Number: US-PFIZER INC-2012249923

PATIENT
  Age: 55 Year
  Sex: Male
  Weight: 112.47 kg

DRUGS (3)
  1. NEURONTIN [Suspect]
     Indication: DIABETIC NEUROPATHY
     Dosage: UNK
     Dates: end: 200706
  2. LYRICA [Suspect]
     Indication: ANALGESIC THERAPY
     Dosage: UNK
     Dates: start: 200707, end: 200707
  3. INSULIN [Concomitant]
     Indication: DIABETES MELLITUS
     Dosage: UNK

REACTIONS (6)
  - Retinal haemorrhage [Unknown]
  - Blindness transient [Unknown]
  - Fibula fracture [Unknown]
  - Tibia fracture [Unknown]
  - Osteoporosis [Unknown]
  - Bone fragmentation [Unknown]
